FAERS Safety Report 8665993 (Version 2)
Quarter: 2012Q4

REPORT INFORMATION
  Report Type: 
  Country: US (occurrence: US)
  Receive Date: 20120716
  Receipt Date: 20121012
  Transmission Date: 20130627
  Serious: No
  Sender: FDA-Public Use
  Company Number: US-PFIZER INC-2012169096

PATIENT
  Age: 81 Year
  Sex: Female

DRUGS (1)
  1. NIFEDIPINE [Suspect]
     Dosage: UNK

REACTIONS (5)
  - Mental disorder [Unknown]
  - Depression [Unknown]
  - Asthenia [Unknown]
  - Pain [Unknown]
  - Insomnia [Unknown]
